FAERS Safety Report 8407341-1 (Version None)
Quarter: 2012Q2

REPORT INFORMATION
  Report Type: 
  Country: None (occurrence: None)
  Receive Date: 20120604
  Receipt Date: 20120601
  Transmission Date: 20120825
  Serious: Yes (Other)
  Sender: FDA-Public Use
  Company Number: PT-EISAI INC-E2090-02142-SPO-PT

PATIENT
  Age: 55 Year
  Sex: Female

DRUGS (11)
  1. BOTULINUM TOXIN [Concomitant]
  2. ESCITALOPRAM [Concomitant]
  3. ESPIRONOLACTONE [Concomitant]
  4. ZONEGRAN [Suspect]
     Route: 048
  5. ZONEGRAN [Suspect]
     Route: 048
     Dates: start: 20110201
  6. MYSOLINE [Concomitant]
  7. EZETIMIBE [Concomitant]
  8. TRITICUM AC [Concomitant]
  9. BONIVA [Concomitant]
  10. ZONEGRAN [Suspect]
     Indication: ESSENTIAL TREMOR
     Route: 048
     Dates: start: 20110201
  11. KAINEVER [Concomitant]

REACTIONS (1)
  - LEUKOPENIA [None]
